FAERS Safety Report 5823933-8 (Version None)
Quarter: 2008Q3

REPORT INFORMATION
  Report Type: 
  Country: None (occurrence: None)
  Receive Date: 20080724
  Receipt Date: 20080717
  Transmission Date: 20090109
  Serious: Yes (Hospitalization, Other)
  Sender: FDA-Public Use
  Company Number: 2008SP014701

PATIENT
  Age: 48 Year
  Sex: Female
  Weight: 86.1834 kg

DRUGS (2)
  1. PEG-INTRON [Suspect]
     Indication: HEPATITIS C
     Dates: start: 20080519
  2. RIBAVIRIN [Suspect]
     Indication: HEPATITIS C
     Dosage: PO
     Route: 048
     Dates: start: 20080519

REACTIONS (12)
  - ABDOMINAL PAIN UPPER [None]
  - ALOPECIA [None]
  - ANAEMIA [None]
  - ANOREXIA [None]
  - ASTHENIA [None]
  - BILIARY TRACT DISORDER [None]
  - COUGH [None]
  - DEHYDRATION [None]
  - HEPATIC CIRRHOSIS [None]
  - RASH [None]
  - VARICES OESOPHAGEAL [None]
  - WEIGHT DECREASED [None]
